FAERS Safety Report 16050561 (Version 1)
Quarter: 2019Q1

REPORT INFORMATION
  Report Type: Spontaneous
  Country: FR (occurrence: FR)
  Receive Date: 20190308
  Receipt Date: 20190308
  Transmission Date: 20190418
  Serious: Yes (Life-Threatening)
  Sender: FDA-Public Use
  Company Number: FR-ACCORD-110979

PATIENT
  Age: 61 Year
  Sex: Female
  Weight: 82 kg

DRUGS (2)
  1. OXALIPLATIN ACCORD [Suspect]
     Active Substance: OXALIPLATIN
     Indication: COLON CANCER
     Dosage: STRENGTH 5 MG / ML
     Route: 042
     Dates: start: 20180720, end: 20180831
  2. XELODA [Concomitant]
     Active Substance: CAPECITABINE

REACTIONS (3)
  - Laryngospasm [Recovered/Resolved]
  - Dysarthria [Recovered/Resolved]
  - Dysphonia [Recovered/Resolved]

NARRATIVE: CASE EVENT DATE: 20180831
